FAERS Safety Report 9759666 (Version 1)
Quarter: 2013Q4

REPORT INFORMATION
  Report Type: Spontaneous
  Country: US (occurrence: US)
  Receive Date: 20131216
  Receipt Date: 20131216
  Transmission Date: 20140711
  Serious: No
  Sender: FDA-Public Use
  Company Number: US-GILEAD-2010-0028578

PATIENT
  Sex: Male
  Weight: 90.26 kg

DRUGS (11)
  1. LETAIRIS [Suspect]
     Indication: PULMONARY ARTERIAL HYPERTENSION
     Route: 048
     Dates: start: 20090623
  2. PREDNISONE [Concomitant]
  3. METOPROLOL [Concomitant]
  4. TAGAMET [Concomitant]
  5. FLOVENT HFA [Concomitant]
  6. ASPIRIN [Concomitant]
  7. IBUPROFEN [Concomitant]
  8. GLUCOSAMINE CHONDROITIN [Concomitant]
  9. POLYETHYLENE GLYCOL [Concomitant]
  10. VITAMIN B12 [Concomitant]
  11. VITAMIN E [Concomitant]

REACTIONS (2)
  - Dyspnoea [Unknown]
  - Drug ineffective [Unknown]
